FAERS Safety Report 8512231-X (Version None)
Quarter: 2012Q3

REPORT INFORMATION
  Report Type: 
  Country: None (occurrence: None)
  Receive Date: 20120716
  Receipt Date: 20120703
  Transmission Date: 20120928
  Serious: Yes (Life-Threatening)
  Sender: FDA-Public Use
  Company Number: US-ROCHE-1084663

PATIENT
  Sex: Male

DRUGS (3)
  1. AVASTIN [Suspect]
     Indication: RENAL CELL CARCINOMA
     Route: 042
  2. DECADRON [Concomitant]
  3. SUTENT [Suspect]
     Indication: RENAL CELL CARCINOMA

REACTIONS (11)
  - PALMAR-PLANTAR ERYTHRODYSAESTHESIA SYNDROME [None]
  - TOOTH DISORDER [None]
  - OEDEMA PERIPHERAL [None]
  - MUSCLE SPASMS [None]
  - ERYTHEMA [None]
  - LOOSE TOOTH [None]
  - DYSPEPSIA [None]
  - BALANCE DISORDER [None]
  - CONVULSION [None]
  - DYSPHONIA [None]
  - TOOTH FRACTURE [None]
